FAERS Safety Report 9417879 (Version 1)
Quarter: 2013Q3

REPORT INFORMATION
  Report Type: Spontaneous
  Country: US (occurrence: US)
  Receive Date: 20130724
  Receipt Date: 20130724
  Transmission Date: 20140515
  Serious: No
  Sender: FDA-Public Use
  Company Number: US-BAUSCH-BL-2012-001784

PATIENT
  Age: 80 Year
  Sex: Female

DRUGS (5)
  1. OPCON-A [Suspect]
     Indication: EYE PRURITUS
     Dosage: TWO DROP IN EACH EYE ONCE
     Route: 047
     Dates: start: 20121115, end: 20121115
  2. DIGOXIN [Concomitant]
     Indication: ATRIAL FIBRILLATION
  3. DILTIAZEM [Concomitant]
     Indication: ATRIAL FIBRILLATION
  4. SIMVASTATIN [Concomitant]
  5. LEVOTHYROXINE SODIUM [Concomitant]

REACTIONS (2)
  - Heart rate irregular [Recovering/Resolving]
  - Heart rate increased [Recovering/Resolving]
